FAERS Safety Report 26003302 (Version 1)
Quarter: 2025Q4

REPORT INFORMATION
  Report Type: Spontaneous
  Country: US (occurrence: US)
  Receive Date: 20251106
  Receipt Date: 20251106
  Transmission Date: 20260118
  Serious: No
  Sender: SANOFI AVENTIS
  Company Number: US-SA-2025SA322006

PATIENT
  Age: 68 Year
  Sex: Male
  Weight: 63.04 kg

DRUGS (43)
  1. REZUROCK [Suspect]
     Active Substance: BELUMOSUDIL
     Indication: Chronic lymphocytic leukaemia
     Dosage: 200 MG, BID
     Route: 048
  2. JAKAFI [Suspect]
     Active Substance: RUXOLITINIB
     Indication: Chronic lymphocytic leukaemia
     Dosage: 10 MG, BID
     Route: 048
     Dates: start: 20250722
  3. JAKAFI [Suspect]
     Active Substance: RUXOLITINIB
     Dosage: 10 MG, BID
     Route: 048
  4. PROTONIX [Concomitant]
     Active Substance: PANTOPRAZOLE SODIUM
     Dosage: UNK
  5. VENCLEXTA [Concomitant]
     Active Substance: VENETOCLAX
     Dosage: UNK
  6. ATORVASTATIN [Concomitant]
     Active Substance: ATORVASTATIN
     Dosage: UNK
  7. BECLOMETHASONE DIPROPIONATE [Concomitant]
     Active Substance: BECLOMETHASONE DIPROPIONATE
     Dosage: UNK
  8. BUDESONIDE [Concomitant]
     Active Substance: BUDESONIDE
     Dosage: UNK
  9. CRESEMBA [Concomitant]
     Active Substance: ISAVUCONAZONIUM SULFATE
     Dosage: UNK
  10. HYDRALAZINE [Concomitant]
     Active Substance: HYDRALAZINE HYDROCHLORIDE
     Dosage: UNK
  11. HYDROXYZINE [Concomitant]
     Active Substance: HYDROXYZINE HYDROCHLORIDE
     Dosage: UNK
  12. Adult multivitamin [Concomitant]
     Dosage: UNK
  13. ZYPREXA [Concomitant]
     Active Substance: OLANZAPINE
     Dosage: UNK
  14. VALTREX [Concomitant]
     Active Substance: VALACYCLOVIR HYDROCHLORIDE
     Dosage: UNK
  15. URSODIOL [Concomitant]
     Active Substance: URSODIOL
     Dosage: UNK
  16. TAMSULOSIN [Concomitant]
     Active Substance: TAMSULOSIN
     Dosage: UNK
  17. TACROLIMUS [Concomitant]
     Active Substance: TACROLIMUS
     Dosage: UNK
  18. SIROLIMUS [Concomitant]
     Active Substance: SIROLIMUS
     Dosage: UNK
  19. REMERON [Concomitant]
     Active Substance: MIRTAZAPINE
     Dosage: UNK
  20. PROCHLORPERAZINE MALEATE [Concomitant]
     Active Substance: PROCHLORPERAZINE MALEATE
     Dosage: UNK
  21. PREDNISONE [Concomitant]
     Active Substance: PREDNISONE
     Dosage: UNK
  22. ZOFRAN [Concomitant]
     Active Substance: ONDANSETRON HYDROCHLORIDE
     Dosage: UNK
  23. PYRIDIUM [Concomitant]
     Active Substance: PHENAZOPYRIDINE
     Dosage: UNK
  24. PREVYMIS [Concomitant]
     Active Substance: LETERMOVIR
     Dosage: UNK
  25. MACROBID [Concomitant]
     Active Substance: NITROFURANTOIN\NITROFURANTOIN MONOHYDRATE
     Dosage: UNK
  26. LIDOPRO [Concomitant]
     Active Substance: CAPSAICIN\LIDOCAINE HYDROCHLORIDE\MENTHOL\METHYL SALICYLATE
     Dosage: UNK
  27. FISH OIL [Concomitant]
     Active Substance: FISH OIL
     Dosage: UNK
  28. METOPROLOL TARTRATE [Concomitant]
     Active Substance: METOPROLOL TARTRATE
     Dosage: UNK
  29. DESONIDE [Concomitant]
     Active Substance: DESONIDE
     Dosage: UNK
  30. SODIUM CHLORIDE [Concomitant]
     Active Substance: SODIUM CHLORIDE
     Dosage: UNK
  31. Chelated magnesium [Concomitant]
     Dosage: UNK
  32. WELLBUTRIN [Concomitant]
     Active Substance: BUPROPION HYDROCHLORIDE
     Dosage: UNK
  33. VITAMIN D3 [Concomitant]
     Active Substance: CHOLECALCIFEROL
     Dosage: UNK
  34. FLUOCINONIDE [Concomitant]
     Active Substance: FLUOCINONIDE
     Dosage: UNK
  35. VIDAZA [Concomitant]
     Active Substance: AZACITIDINE
     Dosage: UNK
  36. MELATONIN [Concomitant]
     Active Substance: MELATONIN
     Dosage: UNK
  37. LIDOCAINE [Concomitant]
     Active Substance: LIDOCAINE
     Dosage: UNK
  38. MENTHOL [Concomitant]
     Active Substance: MENTHOL
     Dosage: UNK
  39. LOSARTAN [Concomitant]
     Active Substance: LOSARTAN
     Dosage: UNK
  40. REFRESH TEARS [Concomitant]
     Active Substance: CARBOXYMETHYLCELLULOSE SODIUM
     Dosage: UNK
  41. CALCIUM [Concomitant]
     Active Substance: CALCIUM
     Dosage: UNK
  42. BACTRIM DS [Concomitant]
     Active Substance: SULFAMETHOXAZOLE\TRIMETHOPRIM
     Dosage: UNK
  43. NIKTIMVO [Concomitant]
     Active Substance: AXATILIMAB-CSFR
     Dosage: UNK
     Route: 042

REACTIONS (3)
  - Rash [Not Recovered/Not Resolved]
  - Urticaria [Not Recovered/Not Resolved]
  - Off label use [Unknown]

NARRATIVE: CASE EVENT DATE: 20250722
